FAERS Safety Report 4359787-9 (Version None)
Quarter: 2004Q2

REPORT INFORMATION
  Report Type: 
  Country: None (occurrence: None)
  Receive Date: 20040518
  Receipt Date: 20040326
  Transmission Date: 20050107
  Serious: Yes (Disabling)
  Sender: FDA-Public Use
  Company Number: NZ-GLAXOSMITHKLINE-B0328216A

PATIENT
  Age: 37 Year
  Sex: Female

DRUGS (3)
  1. PAROXETINE HCL [Suspect]
     Dosage: 20MG PER DAY
     Route: 048
     Dates: start: 20031211, end: 20040316
  2. PROCTOSEDYL OINTMENT [Concomitant]
     Route: 061
     Dates: start: 20040205, end: 20040212
  3. CANESTEN [Concomitant]
     Route: 061
     Dates: start: 20040205, end: 20040212

REACTIONS (7)
  - AMNESIA [None]
  - DYSARTHRIA [None]
  - DYSPEPSIA [None]
  - GAIT DISTURBANCE [None]
  - HEADACHE [None]
  - LETHARGY [None]
  - LOSS OF CONSCIOUSNESS [None]
